FAERS Safety Report 4558145-1 (Version None)
Quarter: 2005Q1

REPORT INFORMATION
  Report Type: 
  Country: None (occurrence: None)
  Receive Date: 20050121
  Receipt Date: 20050112
  Transmission Date: 20050727
  Serious: Yes (Other)
  Sender: FDA-Public Use
  Company Number: 200510311US

PATIENT
  Age: 80 Year
  Sex: Male

DRUGS (1)
  1. LOVENOX [Suspect]
     Indication: DEEP VEIN THROMBOSIS
     Dosage: DOSE: UNK

REACTIONS (2)
  - POST PROCEDURAL HAEMATOMA [None]
  - SPINAL CORD COMPRESSION [None]
